FAERS Safety Report 24106875 (Version 2)
Quarter: 2024Q3

REPORT INFORMATION
  Report Type: Report from Study
  Country: US (occurrence: US)
  Receive Date: 20240717
  Receipt Date: 20240725
  Transmission Date: 20241016
  Serious: Yes (Other)
  Sender: ABBVIE
  Company Number: US-ABBVIE-5841832

PATIENT
  Sex: Male

DRUGS (7)
  1. VENCLEXTA [Suspect]
     Active Substance: VENETOCLAX
     Indication: Chronic lymphocytic leukaemia
     Dosage: 400 MG ORALLY DAILY. TAKE WHOLE WITH WATER AND A MEAL, AT APPROXIMATELY THE SAME TIME EACH DAY. T...
     Route: 048
     Dates: start: 20231218
  2. GAZYVA [Suspect]
     Active Substance: OBINUTUZUMAB
     Indication: Product used for unknown indication
     Dosage: Q28 CYCLE
     Route: 065
     Dates: start: 20231218
  3. ALLOPURINOL [Concomitant]
     Active Substance: ALLOPURINOL
     Indication: Product used for unknown indication
     Dosage: 300 MG ORALLY DAILY. START 2-3 DAYS PRIOR TO START OF OBINUTUZUMAB AND VERNETOCLAX IF AT RISK OF ...
  4. FLUCONAZOLE [Concomitant]
     Active Substance: FLUCONAZOLE
     Indication: Product used for unknown indication
     Dosage: 1 TABLET ORALLY DAILY. TAKE 1 TABLET BY MOUTH ONCE DAILY
     Route: 048
  5. ONDANSETRON [Concomitant]
     Active Substance: ONDANSETRON
     Indication: Vomiting
     Dosage: 1 TABLET, DISINTEGRATING ORALLY EVERY 8 HOURS AS? NEEDED FOR NAUSEA AND VOMITING.
     Route: 048
  6. VALACYCLOVIR [Concomitant]
     Active Substance: VALACYCLOVIR HYDROCHLORIDE
     Indication: Product used for unknown indication
     Dosage: TAKE ONE TABLET BY MOUTH ONE TIME DAILY
     Route: 048
  7. AMLODIPINE [Concomitant]
     Active Substance: AMLODIPINE BESYLATE
     Indication: Product used for unknown indication
     Route: 048

REACTIONS (5)
  - Cardiac failure congestive [Not Recovered/Not Resolved]
  - Lymphadenopathy [Unknown]
  - Hypertension [Unknown]
  - Depression [Unknown]
  - Drug interaction [Unknown]
